FAERS Safety Report 9115169 (Version 1)
Quarter: 2013Q1

REPORT INFORMATION
  Report Type: Spontaneous
  Country: GB (occurrence: None)
  Receive Date: 20130129
  Receipt Date: 20130129
  Transmission Date: 20140127
  Serious: No
  Sender: FDA-Public Use
  Company Number: 1570319

PATIENT
  Sex: Male

DRUGS (4)
  1. CALCIUM FOLINATE [Suspect]
     Indication: CHEMOTHERAPY
  2. IRINOTECAN HYDROCHLORIDE [Suspect]
     Indication: CHEMOTHERAPY
  3. OXALIPLATIN [Suspect]
     Indication: CHEMOTHERAPY
     Dosage: INTRAVENOUS INOT
     Route: 042
     Dates: start: 20080624, end: 20081216
  4. FLUOROURACIL [Suspect]
     Indication: CHEMOTHERAPY

REACTIONS (15)
  - Dyspnoea [None]
  - Gastrointestinal haemorrhage [None]
  - Oedema peripheral [None]
  - Lip ulceration [None]
  - Neuropathy peripheral [None]
  - Lethargy [None]
  - Constipation [None]
  - Epistaxis [None]
  - Lacrimation increased [None]
  - Anaemia [None]
  - Neutrophil count decreased [None]
  - Diarrhoea [None]
  - Pruritus [None]
  - Mucosal inflammation [None]
  - Pruritus [None]
